FAERS Safety Report 6615845-7 (Version None)
Quarter: 2010Q1

REPORT INFORMATION
  Report Type: 
  Country: None (occurrence: None)
  Receive Date: 20100305
  Receipt Date: 20100302
  Transmission Date: 20100710
  Serious: Yes (Hospitalization)
  Sender: FDA-Public Use
  Company Number: US-CEPHALON-2010000857

PATIENT
  Sex: Male
  Weight: 82 kg

DRUGS (13)
  1. TREANDA [Suspect]
     Indication: DIFFUSE LARGE B-CELL LYMPHOMA
     Dates: start: 20090709
  2. VITAMIN C [Concomitant]
  3. FISH OIL [Concomitant]
  4. BACID [Concomitant]
  5. COUMADIN [Concomitant]
  6. ASACOL [Concomitant]
  7. ZOCOR [Concomitant]
  8. ASPIRIN [Concomitant]
  9. CALCIUM [Concomitant]
  10. FOLIC ACID [Concomitant]
  11. MULTIVITAMIN [Concomitant]
  12. TOPROL-XL [Concomitant]
  13. HYDROCHLOROTHIAZIDE [Concomitant]

REACTIONS (4)
  - CLOSTRIDIAL INFECTION [None]
  - NEUTROPENIA [None]
  - PNEUMONIA [None]
  - SYNCOPE [None]
